FAERS Safety Report 23258537 (Version 1)
Quarter: 2023Q4

REPORT INFORMATION
  Report Type: Spontaneous
  Country: US (occurrence: US)
  Receive Date: 20231204
  Receipt Date: 20231204
  Transmission Date: 20240109
  Serious: No
  Sender: FDA-Public Use
  Company Number: US-BIOVITRUM-2023-US-019269

PATIENT
  Age: 7 Month
  Sex: Male

DRUGS (1)
  1. SYNAGIS [Suspect]
     Active Substance: PALIVIZUMAB
     Indication: Premature baby
     Dosage: EVERY 28DAYS -30DAYS
     Route: 030
     Dates: start: 20230403, end: 202311

REACTIONS (2)
  - Mycoplasma test positive [Recovering/Resolving]
  - Adenovirus infection [Unknown]

NARRATIVE: CASE EVENT DATE: 20231108
